FAERS Safety Report 7530135-6 (Version None)
Quarter: 2011Q2

REPORT INFORMATION
  Report Type: 
  Country: None (occurrence: None)
  Receive Date: 20110607
  Receipt Date: 20110527
  Transmission Date: 20111010
  Serious: Yes (Hospitalization)
  Sender: FDA-Public Use
  Company Number: FR-JNJFOC-2006150637

PATIENT
  Age: 17 Year
  Sex: Female

DRUGS (10)
  1. SUDAFED 12 HOUR [Suspect]
     Route: 048
  2. ACETAMINOPHEN [Suspect]
     Indication: SUICIDE ATTEMPT
     Dosage: DAILY DOSE TEXT: 2.5 GRAMS ONCE
     Route: 048
     Dates: start: 20061015, end: 20061015
  3. CHLOROQUINE PHOSPHATE [Suspect]
     Indication: SUICIDE ATTEMPT
     Dosage: DAILY DOSE TEXT: 4 G ONCE
     Route: 048
     Dates: start: 20061015, end: 20061015
  4. METRONIDAZOLE [Suspect]
     Indication: SUICIDE ATTEMPT
     Dosage: DAILY DOSE TEXT: UNKNOWN ONCE
     Route: 048
     Dates: start: 20061015, end: 20061015
  5. VOLTAREN [Suspect]
     Indication: SUICIDE ATTEMPT
     Dosage: DAILY DOSE TEXT: 250 MG ONCE
     Route: 048
     Dates: start: 20061015, end: 20061015
  6. IBUPROFEN [Suspect]
     Route: 048
  7. XANAX [Suspect]
     Indication: SUICIDE ATTEMPT
     Dosage: DAILY DOSE TEXT: 2.5 MG ONCE
     Route: 048
     Dates: start: 20061015, end: 20061015
  8. IBUPROFEN [Suspect]
     Indication: SUICIDE ATTEMPT
     Dosage: DAILY DOSE TEXT: 4 G ONCE
     Route: 048
     Dates: start: 20061015, end: 20061015
  9. SUDAFED 12 HOUR [Suspect]
     Indication: SUICIDE ATTEMPT
     Dosage: DAILY DOSE TEXT: 900 MG - 15 TABLETS ONCE
     Route: 048
     Dates: start: 20061015, end: 20061015
  10. ACECLOFENAC [Suspect]
     Indication: SUICIDE ATTEMPT
     Dosage: DAILY DOSE TEXT: 14 UNITS ONCE
     Route: 048
     Dates: start: 20061015, end: 20061015

REACTIONS (6)
  - VOMITING [None]
  - ASTHENIA [None]
  - PALLOR [None]
  - NAUSEA [None]
  - DIARRHOEA [None]
  - SUICIDE ATTEMPT [None]
